FAERS Safety Report 20011323 (Version 2)
Quarter: 2022Q2

REPORT INFORMATION
  Report Type: Spontaneous
  Country: JP (occurrence: JP)
  Receive Date: 20211029
  Receipt Date: 20220405
  Transmission Date: 20220721
  Serious: Yes (Other)
  Sender: FDA-Public Use
  Company Number: JP-SUN PHARMACEUTICAL INDUSTRIES LTD-2021R1-316148

PATIENT
  Age: 66 Year
  Sex: Male

DRUGS (4)
  1. LITHIUM [Suspect]
     Active Substance: LITHIUM
     Indication: Bipolar I disorder
     Dosage: 800 MILLIGRAM, DAILY
     Route: 065
  2. BLONANSERIN [Concomitant]
     Active Substance: BLONANSERIN
     Indication: Bipolar I disorder
     Dosage: 8 MILLIGRAM, DAILY
     Route: 065
  3. BLONANSERIN [Concomitant]
     Active Substance: BLONANSERIN
     Dosage: 12 MILLIGRAM, DAILY
     Route: 065
  4. TRIAZOLAM [Concomitant]
     Active Substance: TRIAZOLAM
     Indication: Bipolar I disorder
     Dosage: 0.25 MILLIGRAM, DAILY
     Route: 065

REACTIONS (2)
  - Bipolar disorder [Unknown]
  - Hyperthyroidism [Unknown]
